FAERS Safety Report 14758087 (Version 1)
Quarter: 2018Q2

REPORT INFORMATION
  Report Type: Spontaneous
  Country: US (occurrence: US)
  Receive Date: 20180413
  Receipt Date: 20180413
  Transmission Date: 20180711
  Serious: Yes (Disabling, Other)
  Sender: FDA-Public Use
  Company Number: US-REGENERON PHARMACEUTICALS, INC.-2018-16175

PATIENT

DRUGS (2)
  1. EYLEA [Suspect]
     Active Substance: AFLIBERCEPT
     Indication: NEOVASCULAR AGE-RELATED MACULAR DEGENERATION
     Dosage: RIGHT EYE (OD), EVERY 6 WEEKS
     Route: 031
     Dates: start: 20170621, end: 20180302
  2. EYLEA [Suspect]
     Active Substance: AFLIBERCEPT
     Dosage: RIGHT EYE (OD), EVERY 6 WEEKS, LAST DOSE
     Route: 031
     Dates: start: 20180131, end: 20180131

REACTIONS (2)
  - Endophthalmitis [Recovering/Resolving]
  - Blindness transient [Recovering/Resolving]

NARRATIVE: CASE EVENT DATE: 20180203
